FAERS Safety Report 20290443 (Version 1)
Quarter: 2022Q1

REPORT INFORMATION
  Report Type: Spontaneous
  Country: CA (occurrence: CA)
  Receive Date: 20220104
  Receipt Date: 20220104
  Transmission Date: 20220423
  Serious: Yes (Hospitalization, Other)
  Sender: FDA-Public Use
  Company Number: None

PATIENT
  Age: 57 Year
  Sex: Female
  Weight: 66 kg

DRUGS (16)
  1. METHOTREXATE [Suspect]
     Active Substance: METHOTREXATE
     Indication: Product used for unknown indication
     Dosage: 1 EVERY 1 WEEKS
     Route: 048
  2. METHOTREXATE [Suspect]
     Active Substance: METHOTREXATE
     Indication: Product used for unknown indication
     Dosage: 1 EVERY 1 WEEKS
     Route: 048
  3. AZITHROMYCIN [Suspect]
     Active Substance: AZITHROMYCIN
     Indication: Product used for unknown indication
  4. CIPROFLOXACIN [Suspect]
     Active Substance: CIPROFLOXACIN
     Indication: Product used for unknown indication
     Dosage: 2 EVERY 1 DAYS
     Route: 048
  5. COLESTID [Suspect]
     Active Substance: COLESTIPOL HYDROCHLORIDE
     Indication: Product used for unknown indication
  6. DIPHENHYDRAMINE [Suspect]
     Active Substance: DIPHENHYDRAMINE
     Indication: Product used for unknown indication
     Route: 042
  7. FOLIC ACID [Suspect]
     Active Substance: FOLIC ACID
     Indication: Product used for unknown indication
  8. HYDROCORTISONE [Suspect]
     Active Substance: HYDROCORTISONE
     Indication: Product used for unknown indication
  9. INFLIXIMAB [Suspect]
     Active Substance: INFLIXIMAB
     Indication: Crohn^s disease
     Route: 042
  10. LIDOCAINE [Suspect]
     Active Substance: LIDOCAINE
     Indication: Product used for unknown indication
     Dosage: OINTMENT TOPICAL
  11. METRONIDAZOLE BENZOATE [Suspect]
     Active Substance: METRONIDAZOLE BENZOATE
     Indication: Product used for unknown indication
     Dosage: 2 EVERY 1 DAYS
     Route: 048
  12. NAPROXEN [Suspect]
     Active Substance: NAPROXEN
     Indication: Pain
     Dosage: 2 EVERY 1 DAYS
     Route: 048
  13. OXYCODONE [Suspect]
     Active Substance: OXYCODONE
     Indication: Pain
     Route: 048
  14. PENTASA [Suspect]
     Active Substance: MESALAMINE
     Indication: Product used for unknown indication
     Dosage: 1 EVERY 1 DAYS
     Route: 048
  15. VANCOMYCIN HYDROCHLORIDE [Suspect]
     Active Substance: VANCOMYCIN HYDROCHLORIDE
     Indication: Product used for unknown indication
     Dosage: 2 EVERY 1 DAYS
  16. VITAMIN B12 [Suspect]
     Active Substance: CYANOCOBALAMIN
     Indication: Product used for unknown indication

REACTIONS (67)
  - Abdominal discomfort [Unknown]
  - Alanine aminotransferase increased [Unknown]
  - Alopecia [Unknown]
  - Anal skin tags [Unknown]
  - Anorectal discomfort [Unknown]
  - Anxiety [Unknown]
  - Arthritis [Unknown]
  - Back pain [Unknown]
  - Blood cholesterol increased [Unknown]
  - Blood pressure systolic increased [Unknown]
  - Blood triglycerides increased [Unknown]
  - Burning sensation [Unknown]
  - C-reactive protein abnormal [Unknown]
  - COVID-19 [Unknown]
  - Clostridium difficile infection [Unknown]
  - Cough [Unknown]
  - Cystic fibrosis [Unknown]
  - Diarrhoea [Unknown]
  - Discomfort [Unknown]
  - Diverticulum [Unknown]
  - Dyspepsia [Unknown]
  - Fear of injection [Unknown]
  - Female genital tract fistula [Unknown]
  - Fibromyalgia [Unknown]
  - Fistula [Unknown]
  - Flatulence [Unknown]
  - Food allergy [Unknown]
  - Frequent bowel movements [Unknown]
  - Haematocrit increased [Unknown]
  - Haemoglobin increased [Unknown]
  - Haemorrhoids [Unknown]
  - Headache [Unknown]
  - Heart rate decreased [Unknown]
  - Incontinence [Unknown]
  - Infusion site streaking [Unknown]
  - Injury [Unknown]
  - Irritable bowel syndrome [Unknown]
  - Lactose intolerance [Unknown]
  - Large intestinal ulcer [Unknown]
  - Lower respiratory tract infection [Unknown]
  - Malaise [Unknown]
  - Migraine [Unknown]
  - Nasopharyngitis [Unknown]
  - Nausea [Unknown]
  - Nephrolithiasis [Unknown]
  - Nerve compression [Unknown]
  - Oropharyngeal pain [Unknown]
  - Pain [Unknown]
  - Paraesthesia [Unknown]
  - Pharyngitis [Unknown]
  - Pneumonia [Unknown]
  - Procedural anxiety [Unknown]
  - Proctalgia [Unknown]
  - Productive cough [Unknown]
  - Red blood cell sedimentation rate increased [Unknown]
  - Respiratory tract congestion [Unknown]
  - Sinusitis [Unknown]
  - Stress [Unknown]
  - Urinary tract infection [Unknown]
  - Vaginal abscess [Unknown]
  - Vaginal infection [Unknown]
  - Vitamin D increased [Unknown]
  - Weight decreased [Unknown]
  - White blood cell disorder [Unknown]
  - Inappropriate schedule of product administration [Unknown]
  - Intentional product use issue [Unknown]
  - Therapeutic product effect incomplete [Unknown]
